FAERS Safety Report 15537897 (Version 1)
Quarter: 2018Q4

REPORT INFORMATION
  Report Type: Spontaneous
  Country: US (occurrence: US)
  Receive Date: 20181022
  Receipt Date: 20181022
  Transmission Date: 20190205
  Serious: No
  Sender: FDA-Public Use
  Company Number: US-SA-2018SA290117

PATIENT
  Sex: Female

DRUGS (2)
  1. DUPIXENT [Suspect]
     Active Substance: DUPILUMAB
     Indication: DERMATITIS ATOPIC
     Dosage: 300 MG, QOW
     Route: 058
  2. LEVOTHYROXINE [LEVOTHYROXINE SODIUM] [Concomitant]

REACTIONS (3)
  - Swelling [Recovered/Resolved]
  - Blood pressure increased [Recovered/Resolved]
  - Fluid retention [Recovered/Resolved]
